FAERS Safety Report 8845932 (Version 3)
Quarter: 2012Q4

REPORT INFORMATION
  Report Type: 
  Country: FR (occurrence: FR)
  Receive Date: 20121017
  Receipt Date: 20121129
  Transmission Date: 20130627
  Serious: No
  Sender: FDA-Public Use
  Company Number: FR-JNJFOC-20121009500

PATIENT
  Age: 76 Year
  Sex: Female

DRUGS (5)
  1. XARELTO [Suspect]
     Indication: CEREBROVASCULAR ACCIDENT PROPHYLAXIS
     Route: 065
     Dates: start: 201209
  2. XARELTO [Suspect]
     Indication: ATRIAL FIBRILLATION
     Route: 065
     Dates: start: 201209
  3. SECTRAL [Suspect]
     Indication: HYPERTENSION
     Route: 065
  4. APROVEL [Concomitant]
     Route: 065
  5. FLECAINE [Concomitant]
     Route: 065

REACTIONS (1)
  - Hypotension [Recovering/Resolving]
